FAERS Safety Report 22040275 (Version 2)
Quarter: 2023Q2

REPORT INFORMATION
  Report Type: Report from Study
  Country: GB (occurrence: GB)
  Receive Date: 20230227
  Receipt Date: 20230506
  Transmission Date: 20230721
  Serious: Yes (Life-Threatening)
  Sender: FDA-Public Use
  Company Number: GB-002147023-NVSC2023GB028842

PATIENT
  Sex: Female

DRUGS (2)
  1. COSENTYX [Suspect]
     Active Substance: SECUKINUMAB
     Indication: Psoriatic arthropathy
     Dosage: 300 MG, QMO
     Route: 058
     Dates: start: 20150615
  2. COSENTYX [Suspect]
     Active Substance: SECUKINUMAB
     Dosage: 300 MG, QMO
     Route: 058
     Dates: start: 20210601

REACTIONS (13)
  - Feeling abnormal [Unknown]
  - Scar [Not Recovered/Not Resolved]
  - Skin haemorrhage [Unknown]
  - Cyst [Not Recovered/Not Resolved]
  - Fungal infection [Unknown]
  - Inflammation [Unknown]
  - Pain [Unknown]
  - Infection [Unknown]
  - Cough [Unknown]
  - Stress [Unknown]
  - Hypoaesthesia [Unknown]
  - Grip strength decreased [Unknown]
  - Arthritis [Unknown]
